FAERS Safety Report 10456821 (Version 1)
Quarter: 2014Q3

REPORT INFORMATION
  Report Type: Spontaneous
  Country: IN (occurrence: IN)
  Receive Date: 20140916
  Receipt Date: 20140916
  Transmission Date: 20150326
  Serious: Yes (Death)
  Sender: FDA-Public Use
  Company Number: IN-MERCK-1409IND006713

PATIENT
  Sex: Male
  Weight: 63 kg

DRUGS (1)
  1. JANUVIA [Suspect]
     Active Substance: SITAGLIPTIN PHOSPHATE
     Indication: DIABETES MELLITUS
     Dosage: 100 MG, ONCE DAILY
     Route: 048
     Dates: start: 20110109, end: 20140905

REACTIONS (2)
  - Haemoglobin abnormal [Unknown]
  - Death [Fatal]

NARRATIVE: CASE EVENT DATE: 20140905
